FAERS Safety Report 21331110 (Version 2)
Quarter: 2025Q2

REPORT INFORMATION
  Report Type: Spontaneous
  Country: RO (occurrence: RO)
  Receive Date: 20220914
  Receipt Date: 20250531
  Transmission Date: 20250717
  Serious: Yes (Other)
  Sender: AUROBINDO
  Company Number: RO-Zentiva-2022-ZT-007568

PATIENT
  Age: 65 Year
  Sex: Female

DRUGS (8)
  1. ROSUVASTATIN [Suspect]
     Active Substance: ROSUVASTATIN
     Indication: Hyperlipidaemia
     Route: 065
     Dates: start: 2018, end: 2019
  2. EZETIMIBE [Suspect]
     Active Substance: EZETIMIBE
     Indication: Hyperlipidaemia
     Route: 065
  3. AZATHIOPRINE [Suspect]
     Active Substance: AZATHIOPRINE
     Indication: Drug therapy
     Dosage: 50 MILLIGRAM, ONCE A DAY
     Route: 065
  4. AZATHIOPRINE [Suspect]
     Active Substance: AZATHIOPRINE
     Dosage: 100 MILLIGRAM, ONCE A DAY
     Route: 065
  5. METHYLPREDNISOLONE [Concomitant]
     Active Substance: METHYLPREDNISOLONE
     Indication: Immune-mediated myositis
     Route: 065
     Dates: start: 2017
  6. METHOTREXATE [Concomitant]
     Active Substance: METHOTREXATE
     Indication: Immune-mediated myositis
     Dosage: 10 MILLIGRAM, EVERY WEEK
     Route: 065
     Dates: start: 2017
  7. METHOTREXATE [Concomitant]
     Active Substance: METHOTREXATE
     Dosage: 20 MILLIGRAM, EVERY WEEK
     Route: 065
  8. SIMVASTATIN [Concomitant]
     Active Substance: SIMVASTATIN
     Indication: Product used for unknown indication
     Dosage: 80 MILLIGRAM, ONCE A DAY
     Route: 065

REACTIONS (3)
  - Immune-mediated myositis [Recovered/Resolved]
  - Blood creatine phosphokinase increased [Recovered/Resolved]
  - Concomitant disease progression [Recovered/Resolved]
